FAERS Safety Report 5176751-0 (Version None)
Quarter: 2006Q4

REPORT INFORMATION
  Report Type: 
  Country: None (occurrence: None)
  Receive Date: 20061211
  Receipt Date: 20061211
  Transmission Date: 20070319
  Serious: Yes (Death)
  Sender: FDA-Public Use
  Company Number: None

PATIENT
  Age: 54 Year
  Sex: Male
  Weight: 72.5755 kg

DRUGS (2)
  1. CYPHER STENT CXS08250 J + J [Suspect]
     Indication: ACUTE MYOCARDIAL INFARCTION
     Dates: start: 20050922, end: 20060904
  2. CYPHER STENT CXS08250 J + J [Suspect]
     Indication: CORONARY ARTERY OCCLUSION
     Dates: start: 20050922, end: 20060904

REACTIONS (4)
  - FALL [None]
  - RESUSCITATION [None]
  - SKIN DISCOLOURATION [None]
  - SUDDEN DEATH [None]
